FAERS Safety Report 7919813-4 (Version None)
Quarter: 2011Q4

REPORT INFORMATION
  Report Type: 
  Country: None (occurrence: None)
  Receive Date: 20111117
  Receipt Date: 20111117
  Transmission Date: 20120403
  Serious: Yes (Other)
  Sender: FDA-Public Use
  Company Number: None

PATIENT
  Age: 22 Year
  Sex: Female

DRUGS (1)
  1. CHLORAPREP ONE-STEP FREPP [Suspect]
     Indication: THERAPEUTIC SKIN CARE TOPICAL
     Dosage: 1.5 ML
     Route: 061
     Dates: start: 20111116, end: 20111116

REACTIONS (2)
  - LACERATION [None]
  - PRODUCT CONTAMINATION PHYSICAL [None]
